FAERS Safety Report 21290033 (Version 1)
Quarter: 2022Q3

REPORT INFORMATION
  Report Type: Spontaneous
  Country: US (occurrence: US)
  Receive Date: 20220902
  Receipt Date: 20220902
  Transmission Date: 20221027
  Serious: No
  Sender: FDA-Public Use
  Company Number: US-KOWA-21US003725

PATIENT

DRUGS (12)
  1. LIVALO [Suspect]
     Active Substance: PITAVASTATIN CALCIUM
     Indication: Hypercholesterolaemia
     Dosage: 2 MG, QD
     Dates: start: 20211031, end: 20211101
  2. PREVACID [Concomitant]
     Active Substance: LANSOPRAZOLE
     Indication: Gastrooesophageal reflux disease
     Dosage: 30 MG, QD
  3. VALACYCLOVIR [Concomitant]
     Active Substance: VALACYCLOVIR HYDROCHLORIDE
     Indication: Oral herpes
     Dosage: 1000 MG, QD
  4. VITAMIN B12 [Concomitant]
     Active Substance: CYANOCOBALAMIN
     Indication: Product used for unknown indication
     Dosage: 1000 ?G, QW
     Route: 060
  5. VITAMINS NOS [Concomitant]
     Active Substance: VITAMINS
     Indication: Product used for unknown indication
     Dosage: UNK, QD
  6. XARELTO [Concomitant]
     Active Substance: RIVAROXABAN
     Indication: Deep vein thrombosis
     Dosage: 20 MG, QD
  7. MAGNESIUM [Concomitant]
     Active Substance: MAGNESIUM
     Indication: Supraventricular extrasystoles
     Dosage: 400 MG, 4 TIMES PER WEEK
  8. MAGNESIUM [Concomitant]
     Active Substance: MAGNESIUM
     Indication: Ventricular extrasystoles
  9. MAGNESIUM [Concomitant]
     Active Substance: MAGNESIUM
     Indication: Supraventricular extrasystoles
     Dosage: 250 MG, TIW
  10. MAGNESIUM [Concomitant]
     Active Substance: MAGNESIUM
     Indication: Ventricular extrasystoles
  11. ZYRTEC [Concomitant]
     Active Substance: CETIRIZINE HYDROCHLORIDE
     Indication: Seasonal allergy
     Dosage: UNK
  12. ASPIRIN [Concomitant]
     Active Substance: ASPIRIN
     Indication: Product used for unknown indication
     Dosage: 81 MG, QD

REACTIONS (9)
  - Glossodynia [Recovered/Resolved]
  - Facial discomfort [Recovered/Resolved]
  - Tongue discomfort [Recovered/Resolved]
  - Oropharyngeal discomfort [Recovered/Resolved]
  - Dysphonia [Recovered/Resolved]
  - Gastrooesophageal reflux disease [Recovered/Resolved]
  - Tongue ulceration [Recovered/Resolved]
  - Glossitis [Not Recovered/Not Resolved]
  - Pain in extremity [Recovered/Resolved]

NARRATIVE: CASE EVENT DATE: 20211031
